FAERS Safety Report 8789642 (Version 2)
Quarter: 2012Q4

REPORT INFORMATION
  Report Type: Spontaneous
  Country: US (occurrence: None)
  Receive Date: 20120905
  Receipt Date: 20120913
  Transmission Date: 20130627
  Serious: Yes (Hospitalization)
  Sender: FDA-Public Use
  Company Number: FK201202528

PATIENT
  Age: 64 Year
  Sex: Male
  Weight: 61.24 kg

DRUGS (3)
  1. DEXAMETHASONE [Suspect]
     Indication: MULTIPLE MYELOMA
     Dosage: 10 tabs
     Route: 048
  2. DEXAMETHASONE [Suspect]
     Indication: MULTIPLE MYELOMA
     Dosage: with Bortezomib
  3. BORTEZOMIB [Suspect]
     Indication: MULTIPLE MYELOMA
     Route: 058

REACTIONS (3)
  - Streptococcal bacteraemia [None]
  - Staphylococcal bacteraemia [None]
  - Plasma cell myeloma [None]
